FAERS Safety Report 18966217 (Version 4)
Quarter: 2021Q2

REPORT INFORMATION
  Report Type: Spontaneous
  Country: JP (occurrence: JP)
  Receive Date: 20210304
  Receipt Date: 20210625
  Transmission Date: 20210717
  Serious: Yes (Death, Hospitalization, Other)
  Sender: FDA-Public Use
  Company Number: JP-BRISTOL-MYERS SQUIBB COMPANY-BMS-2021-020791

PATIENT
  Age: 66 Year
  Sex: Male
  Weight: 54.2 kg

DRUGS (7)
  1. GLYCERIN ADULT [Concomitant]
     Active Substance: GLYCERIN
     Indication: DYSARTHRIA
  2. DEXART [Concomitant]
     Active Substance: DEXAMETHASONE SODIUM PHOSPHATE
     Indication: HEMIPLEGIA
     Dosage: UNK
     Route: 065
  3. CALONAL [Concomitant]
     Active Substance: ACETAMINOPHEN
     Indication: PAIN
     Dosage: 600 MILLIGRAM, Q6H
     Route: 048
     Dates: start: 20191017
  4. GLYCERIN ADULT [Concomitant]
     Active Substance: GLYCERIN
     Indication: HEMIPLEGIA
     Dosage: UNK
     Route: 065
  5. OPDIVO [Suspect]
     Active Substance: NIVOLUMAB
     Indication: METASTATIC RENAL CELL CARCINOMA
     Dosage: 240 MILLIGRAM
     Route: 041
     Dates: start: 20191018, end: 20200402
  6. DEXART [Concomitant]
     Active Substance: DEXAMETHASONE SODIUM PHOSPHATE
     Indication: DYSARTHRIA
  7. YERVOY [Suspect]
     Active Substance: IPILIMUMAB
     Indication: METASTATIC RENAL CELL CARCINOMA
     Dosage: 54.4 MILLIGRAM
     Route: 041
     Dates: start: 20191018, end: 20191219

REACTIONS (4)
  - Pyrexia [Not Recovered/Not Resolved]
  - Malignant neoplasm progression [Fatal]
  - Loss of personal independence in daily activities [Unknown]
  - Urinary tract infection [Unknown]

NARRATIVE: CASE EVENT DATE: 20200415
